FAERS Safety Report 4345568-9 (Version None)
Quarter: 2004Q1

REPORT INFORMATION
  Report Type: 
  Country: None (occurrence: None)
  Receive Date: 20040325
  Receipt Date: 20040216
  Transmission Date: 20041129
  Serious: No
  Sender: FDA-Public Use
  Company Number: USA040259121

PATIENT
  Age: 71 Year
  Sex: Female

DRUGS (19)
  1. FORTEO [Suspect]
     Indication: OSTEOPOROSIS
     Dates: start: 20040101
  2. EVISTA [Concomitant]
  3. ACTONEL [Concomitant]
  4. MIACALCIN [Concomitant]
  5. FLONASE [Concomitant]
  6. CALCIUM [Concomitant]
  7. MULTI-VITAMIN [Concomitant]
  8. ASPIRIN [Concomitant]
  9. FLOVENT [Concomitant]
  10. LEVBID (HYOSCYAMINE SULFATE) [Concomitant]
  11. CELEBREX [Concomitant]
  12. SYNTHROID [Concomitant]
  13. NEXIUM [Concomitant]
  14. COVERA-HS [Concomitant]
  15. ATENOLOL [Concomitant]
  16. ZESTORETIC [Concomitant]
  17. FLORINEF [Concomitant]
  18. CORTEF [Concomitant]
  19. FIBERCON (POLYCARBOPHIL CALCIUM) [Concomitant]

REACTIONS (2)
  - ARTHRALGIA [None]
  - PAIN [None]
